FAERS Safety Report 8204691-9 (Version None)
Quarter: 2012Q1

REPORT INFORMATION
  Report Type: 
  Country: None (occurrence: None)
  Receive Date: 20120313
  Receipt Date: 20120305
  Transmission Date: 20120608
  Serious: Yes (Hospitalization)
  Sender: FDA-Public Use
  Company Number: FR-JNJFOC-20120303141

PATIENT
  Age: 48 Year
  Sex: Female

DRUGS (12)
  1. ACETAMINOPHEN [Concomitant]
     Route: 065
  2. XANAX [Concomitant]
     Route: 065
  3. NOROXIN [Concomitant]
     Route: 065
  4. ARIXTRA [Concomitant]
     Route: 065
  5. MOTILIUM [Suspect]
     Indication: VOMITING
     Route: 048
  6. DURAGESIC-100 [Suspect]
     Indication: PAIN
     Route: 062
  7. ZOLPIDEM [Concomitant]
     Route: 065
  8. BISOPROLOL FUMARATE [Concomitant]
     Route: 065
  9. RAMIPRIL [Concomitant]
     Route: 065
  10. DITROPAN [Interacting]
     Indication: URINARY INCONTINENCE
     Route: 048
  11. KEPPRA [Concomitant]
     Route: 065
  12. NEXIUM [Concomitant]
     Route: 065

REACTIONS (4)
  - PYELONEPHRITIS [None]
  - SUBILEUS [None]
  - DRUG INTERACTION [None]
  - FAECALOMA [None]
